FAERS Safety Report 10262046 (Version 2)
Quarter: 2014Q2

REPORT INFORMATION
  Report Type: Report from Study
  Country: US (occurrence: US)
  Receive Date: 20140626
  Receipt Date: 20140626
  Transmission Date: 20141212
  Serious: Yes (Hospitalization, Other)
  Sender: FDA-Public Use
  Company Number: US-ABBVIE-14P-163-1248278-00

PATIENT
  Age: 61 Year
  Sex: Female

DRUGS (7)
  1. HUMIRA [Suspect]
     Indication: RHEUMATOID ARTHRITIS
     Dates: start: 2002
  2. HUMIRA [Suspect]
     Indication: PSORIATIC ARTHROPATHY
  3. METHOTREXATE [Concomitant]
     Indication: PRODUCT USED FOR UNKNOWN INDICATION
  4. PANTOPRAZOLE [Concomitant]
     Indication: GASTROOESOPHAGEAL REFLUX DISEASE
  5. BUTALBITAL [Concomitant]
     Indication: HEADACHE
  6. VICODIN [Concomitant]
     Indication: PAIN
     Dosage: 5-500MG
  7. ESTROGEN PATCH [Concomitant]
     Indication: HORMONE REPLACEMENT THERAPY

REACTIONS (9)
  - Cholecystectomy [Recovered/Resolved]
  - Gastric banding [Recovered/Resolved]
  - Abdominoplasty [Recovered/Resolved]
  - Mammoplasty [Recovered/Resolved]
  - Insomnia [Unknown]
  - Pain in extremity [Unknown]
  - Hypoaesthesia [Not Recovered/Not Resolved]
  - Facet joint syndrome [Not Recovered/Not Resolved]
  - Synovial cyst [Not Recovered/Not Resolved]
